FAERS Safety Report 4534730-8 (Version None)
Quarter: 2004Q4

REPORT INFORMATION
  Report Type: 
  Country: None (occurrence: None)
  Receive Date: 20041222
  Receipt Date: 20031217
  Transmission Date: 20050328
  Serious: No
  Sender: FDA-Public Use
  Company Number: US-BRISTOL-MYERS SQUIBB COMPANY-12460986

PATIENT
  Age: 82 Year
  Sex: Male
  Weight: 79 kg

DRUGS (4)
  1. PRAVACHOL [Suspect]
     Indication: ANGIOPLASTY
     Route: 048
  2. LIPITOR [Concomitant]
  3. LISINOPRIL [Concomitant]
  4. PRILOSEC [Concomitant]

REACTIONS (2)
  - ASTHENIA [None]
  - FEELING ABNORMAL [None]
